FAERS Safety Report 12443399 (Version 1)
Quarter: 2016Q2

REPORT INFORMATION
  Report Type: Spontaneous
  Country: JP (occurrence: JP)
  Receive Date: 20160607
  Receipt Date: 20160607
  Transmission Date: 20160815
  Serious: Yes (Other)
  Sender: FDA-Public Use
  Company Number: JP-PFIZER INC-2016289078

PATIENT
  Age: 31 Year
  Sex: Female
  Weight: 45.6 kg

DRUGS (1)
  1. BUPIVACAINE. [Suspect]
     Active Substance: BUPIVACAINE
     Indication: SPINAL ANAESTHESIA
     Dosage: 10 MG, UNK

REACTIONS (4)
  - Cardiac arrest [Recovered/Resolved]
  - Myocardial infarction [Unknown]
  - Ventricular fibrillation [Recovered/Resolved]
  - Prinzmetal angina [Unknown]
